FAERS Safety Report 5253630-1 (Version None)
Quarter: 2007Q1

REPORT INFORMATION
  Report Type: 
  Country: None (occurrence: None)
  Receive Date: 20070301
  Receipt Date: 20070219
  Transmission Date: 20070707
  Serious: Yes (Life-Threatening, Other)
  Sender: FDA-Public Use
  Company Number: JP-PFIZER INC-2007013710

PATIENT
  Age: 85 Year
  Sex: Female

DRUGS (2)
  1. VFEND [Suspect]
     Indication: BRONCHOPULMONARY ASPERGILLOSIS
     Dosage: DAILY DOSE:400MG
     Route: 042
     Dates: start: 20070213, end: 20070218
  2. TIENAM [Suspect]
     Indication: PNEUMONIA
     Route: 042
     Dates: start: 20070213, end: 20070218

REACTIONS (2)
  - HAEMORRHAGE SUBCUTANEOUS [None]
  - PLATELET COUNT DECREASED [None]
